FAERS Safety Report 6906753-2 (Version None)
Quarter: 2010Q3

REPORT INFORMATION
  Report Type: 
  Country: None (occurrence: None)
  Receive Date: 20100802
  Receipt Date: 20100716
  Transmission Date: 20110219
  Serious: Yes (Other)
  Sender: FDA-Public Use
  Company Number: JPI-P-011476

PATIENT
  Age: 60 Year
  Sex: Female

DRUGS (1)
  1. XYREM [Suspect]
     Indication: PRODUCT USED FOR UNKNOWN INDICATION
     Dosage: (0.75-2.25 GM TWICE NIGHTLY TITRATING), ORAL; 12 GM (6 GM, 2 IN 1 D), ORAL
     Route: 048
     Dates: start: 20050811

REACTIONS (1)
  - BLADDER DISORDER [None]
